FAERS Safety Report 25957450 (Version 1)
Quarter: 2025Q4

REPORT INFORMATION
  Report Type: Spontaneous
  Country: US (occurrence: US)
  Receive Date: 20251024
  Receipt Date: 20251024
  Transmission Date: 20260117
  Serious: Yes (Other)
  Sender: VERTEX
  Company Number: US-VERTEX PHARMACEUTICALS-2025-017378

PATIENT

DRUGS (1)
  1. CASGEVY [Suspect]
     Active Substance: EXAGAMGLOGENE AUTOTEMCEL
     Indication: Thalassaemia beta
     Dosage: UNK
     Route: 042

REACTIONS (2)
  - Epistaxis [Unknown]
  - Thrombocytopenia [Unknown]

NARRATIVE: CASE EVENT DATE: 20251013
